FAERS Safety Report 12976929 (Version 2)
Quarter: 2016Q4

REPORT INFORMATION
  Report Type: Spontaneous
  Country: BG (occurrence: BG)
  Receive Date: 20161128
  Receipt Date: 20161205
  Transmission Date: 20170207
  Serious: Yes (Death, Hospitalization, Other)
  Sender: FDA-Public Use
  Company Number: PHHY2016BG105297

PATIENT
  Age: 46 Year
  Sex: Female
  Weight: 70 kg

DRUGS (2)
  1. AFINITOR [Suspect]
     Active Substance: EVEROLIMUS
     Dosage: 1 DF, QOD
     Route: 048
     Dates: start: 20160711, end: 20161019
  2. AFINITOR [Suspect]
     Active Substance: EVEROLIMUS
     Indication: BREAST CANCER METASTATIC
     Dosage: 1 DF, QD
     Route: 048
     Dates: start: 20160610, end: 20160710

REACTIONS (12)
  - Malignant neoplasm progression [Fatal]
  - Hepatitis [Unknown]
  - Abdominal distension [Unknown]
  - Ocular icterus [Unknown]
  - Vomiting [Unknown]
  - Yellow skin [Unknown]
  - Tooth abscess [Recovering/Resolving]
  - Circulatory collapse [Fatal]
  - Nausea [Unknown]
  - Back pain [Unknown]
  - Ascites [Unknown]
  - Pulmonary mass [Unknown]

NARRATIVE: CASE EVENT DATE: 201606
